FAERS Safety Report 6735511-7 (Version None)
Quarter: 2010Q2

REPORT INFORMATION
  Report Type: 
  Country: None (occurrence: None)
  Receive Date: 20100519
  Receipt Date: 20100506
  Transmission Date: 20101027
  Serious: Yes (Hospitalization)
  Sender: FDA-Public Use
  Company Number: IDA-00360

PATIENT
  Age: 17 Year
  Sex: Female

DRUGS (4)
  1. INDERAL [Suspect]
     Dosage: 20 MG DAILY ORAL FORMULATION: TABLET
     Route: 048
  2. NOZINAN (LEVOMEPROMAZINE) STRENGTH: 25 MG [Suspect]
     Dosage: ORAL FORMULATION: TABLET
     Route: 048
  3. FLUOXETINE [Suspect]
     Dosage: 20 MG DAILY ORAL
     Route: 048
  4. ZOPIKLON NM PHARMA (ZOPICLONE) [Suspect]
     Dosage: 15 MG DAILY ORAL
     Route: 048

REACTIONS (2)
  - CONVULSION [None]
  - SYNCOPE [None]
